FAERS Safety Report 15846035 (Version 1)
Quarter: 2019Q1

REPORT INFORMATION
  Report Type: Spontaneous
  Country: US (occurrence: US)
  Receive Date: 20190120
  Receipt Date: 20190120
  Transmission Date: 20190417
  Serious: No
  Sender: FDA-Public Use
  Company Number: US-DEXPHARM-20180569

PATIENT
  Age: 15 Year
  Sex: Male
  Weight: 65.76 kg

DRUGS (1)
  1. OMEPRAZOLE DELAYED RELEASE TABLETS 20 MG [Suspect]
     Active Substance: OMEPRAZOLE
     Indication: HEADACHE
     Dosage: 40 MG, SINGLE
     Route: 048
     Dates: start: 20180809, end: 20180809

REACTIONS (2)
  - Wrong product administered [Recovered/Resolved]
  - Vomiting [Recovered/Resolved]

NARRATIVE: CASE EVENT DATE: 20180809
